FAERS Safety Report 9900646 (Version 2)
Quarter: 2014Q1

REPORT INFORMATION
  Report Type: Report from Study
  Country: DE (occurrence: DE)
  Receive Date: 20140217
  Receipt Date: 20140319
  Transmission Date: 20141002
  Serious: Yes (Death)
  Sender: FDA-Public Use
  Company Number: DE-ROCHE-1349498

PATIENT
  Sex: Male
  Weight: 109 kg

DRUGS (1)
  1. BEVACIZUMAB [Suspect]
     Indication: RENAL CELL CARCINOMA
     Route: 065

REACTIONS (1)
  - Pain [Fatal]
